FAERS Safety Report 7842462-3 (Version None)
Quarter: 2011Q4

REPORT INFORMATION
  Report Type: 
  Country: None (occurrence: None)
  Receive Date: 20111025
  Receipt Date: 20111021
  Transmission Date: 20120403
  Serious: Yes (Other)
  Sender: FDA-Public Use
  Company Number: PHHY2011FR93517

PATIENT
  Age: 78 Year
  Sex: Male

DRUGS (3)
  1. ZOLADEX [Concomitant]
     Route: 065
     Dates: start: 20110701
  2. ANDROCUR [Concomitant]
     Indication: HOT FLUSH
     Dosage: 1 DF, TWICE A WEEK
     Route: 065
     Dates: start: 20110701
  3. ZOMETA [Suspect]
     Indication: PROSTATE CANCER METASTATIC
     Dates: start: 20110901

REACTIONS (1)
  - EPISCLERITIS [None]
